FAERS Safety Report 16876640 (Version 1)
Quarter: 2019Q4

REPORT INFORMATION
  Report Type: Spontaneous
  Country: US (occurrence: US)
  Receive Date: 20191002
  Receipt Date: 20191002
  Transmission Date: 20200122
  Serious: Yes (Hospitalization, Other)
  Sender: FDA-Public Use
  Company Number: US-AMGEN-USASP2019159505

PATIENT
  Sex: Female

DRUGS (3)
  1. ENBREL [Suspect]
     Active Substance: ETANERCEPT
     Indication: RHEUMATOID ARTHRITIS
     Dosage: 50 MILLIGRAM
     Route: 065
     Dates: end: 201906
  2. VALIUM [Concomitant]
     Active Substance: DIAZEPAM
     Dosage: 5 MILLIGRAM, BID
     Dates: end: 2019
  3. PRAVASTATIN. [Concomitant]
     Active Substance: PRAVASTATIN
     Indication: BLOOD CHOLESTEROL INCREASED
     Dosage: UNK (HIGH DOSE)
     Dates: start: 201909, end: 201909

REACTIONS (12)
  - Pneumonia pseudomonal [Not Recovered/Not Resolved]
  - Pneumonia [Not Recovered/Not Resolved]
  - Insomnia [Unknown]
  - Joint fluid drainage [Unknown]
  - Umbilical hernia [Unknown]
  - Sleep apnoea syndrome [Unknown]
  - Weight increased [Unknown]
  - Nausea [Unknown]
  - Spinal fracture [Unknown]
  - Pain [Not Recovered/Not Resolved]
  - Traumatic fracture [Unknown]
  - Bacterial test positive [Unknown]

NARRATIVE: CASE EVENT DATE: 2013
